FAERS Safety Report 4642170-6 (Version None)
Quarter: 2005Q2

REPORT INFORMATION
  Report Type: 
  Country: None (occurrence: None)
  Receive Date: 20050420
  Receipt Date: 20050415
  Transmission Date: 20051028
  Serious: Yes (Other)
  Sender: FDA-Public Use
  Company Number: 141274USA0

PATIENT
  Age: 47 Year
  Sex: Female

DRUGS (6)
  1. COPAXONE [Suspect]
     Indication: RELAPSING-REMITTING MULTIPLE SCLEROSIS
  2. PROPRANOLOL [Concomitant]
  3. XANAX [Concomitant]
  4. DITROPAN [Concomitant]
  5. PREVACID [Concomitant]
  6. COLACE [Concomitant]

REACTIONS (2)
  - NON-HODGKIN'S LYMPHOMA [None]
  - SUPERIOR VENA CAVAL OCCLUSION [None]
